FAERS Safety Report 7385961-3 (Version None)
Quarter: 2011Q1

REPORT INFORMATION
  Report Type: 
  Country: None (occurrence: None)
  Receive Date: 20110331
  Receipt Date: 20110317
  Transmission Date: 20110831
  Serious: Yes (Other)
  Sender: FDA-Public Use
  Company Number: CA-JNJFOC-20110308663

PATIENT
  Sex: Male
  Weight: 59 kg

DRUGS (3)
  1. VITAMIN B-12 [Concomitant]
     Dosage: X 4 WEEKS
     Route: 058
  2. REMICADE [Suspect]
     Indication: CROHN'S DISEASE
     Route: 042
  3. VITAMIN B-12 [Concomitant]
     Dosage: AFTER WEEKLY X 4 COMPLETED
     Route: 058

REACTIONS (2)
  - HAND FRACTURE [None]
  - LIMB CRUSHING INJURY [None]
